FAERS Safety Report 23984201 (Version 1)
Quarter: 2024Q2

REPORT INFORMATION
  Report Type: Spontaneous
  Country: US (occurrence: US)
  Receive Date: 20240618
  Receipt Date: 20240618
  Transmission Date: 20240716
  Serious: No
  Sender: FDA-Public Use
  Company Number: US-ELI_LILLY_AND_COMPANY-US202406008293

PATIENT
  Age: 26 Year
  Sex: Female

DRUGS (1)
  1. STRATTERA [Suspect]
     Active Substance: ATOMOXETINE HYDROCHLORIDE
     Indication: Attention deficit hyperactivity disorder
     Dosage: 40 MG, DAILY
     Route: 065
     Dates: start: 20240311, end: 20240312

REACTIONS (9)
  - Cardiac flutter [Unknown]
  - Feeling abnormal [Unknown]
  - Chest pain [Unknown]
  - Hypoaesthesia [Unknown]
  - Dry mouth [Unknown]
  - Hypertension [Unknown]
  - Palpitations [Unknown]
  - Dyspepsia [Unknown]
  - Dizziness [Unknown]

NARRATIVE: CASE EVENT DATE: 20240312
